FAERS Safety Report 9935113 (Version 1)
Quarter: 2014Q1

REPORT INFORMATION
  Report Type: Spontaneous
  Country: NL (occurrence: NL)
  Receive Date: 20140228
  Receipt Date: 20140228
  Transmission Date: 20141002
  Serious: Yes (Other)
  Sender: FDA-Public Use
  Company Number: NL-PFIZER INC-2014056141

PATIENT
  Age: 48 Year
  Sex: Female
  Weight: 60 kg

DRUGS (2)
  1. LYRICA [Suspect]
     Indication: PAIN
     Dosage: 75 MG, 2X/DAY
     Dates: start: 2012, end: 20140214
  2. TRAMADOL [Concomitant]
     Dosage: 100 MG, 3X/DAY
     Dates: start: 19970115

REACTIONS (2)
  - Abasia [Unknown]
  - Oedema peripheral [Not Recovered/Not Resolved]
